FAERS Safety Report 15473111 (Version 1)
Quarter: 2018Q4

REPORT INFORMATION
  Report Type: Spontaneous
  Country: DK (occurrence: DK)
  Receive Date: 20181008
  Receipt Date: 20181008
  Transmission Date: 20190205
  Serious: Yes (Death, Life-Threatening)
  Sender: FDA-Public Use
  Company Number: DK-B.I. PHARMACEUTICALS,INC./RIDGEFIELD-2018-12-003356

PATIENT
  Age: 80 Year
  Sex: Female
  Weight: 65 kg

DRUGS (3)
  1. SYNJARDY [Suspect]
     Active Substance: EMPAGLIFLOZIN\METFORMIN HYDROCHLORIDE
     Indication: TYPE 2 DIABETES MELLITUS
     Dosage: STRENGTH: 12,5 MG/1000 MG
     Route: 048
     Dates: start: 20180529
  2. VICTOZA [Concomitant]
     Active Substance: LIRAGLUTIDE
     Indication: TYPE 2 DIABETES MELLITUS
     Dosage: STRENGTH: 6 MG/ML, FORM OF ADMIN: SOLUTION FOR INJECTION IN PRE-FILLED PEN
     Route: 065
     Dates: start: 20180623
  3. PREDNISOLON ^DLF^ [Concomitant]
     Active Substance: PREDNISOLONE
     Indication: ARTHRITIS
     Dosage: STRENGTH: 5 MG
     Route: 048
     Dates: start: 20180621

REACTIONS (8)
  - Dehydration [Unknown]
  - Hyponatraemia [Unknown]
  - Diarrhoea [Unknown]
  - Hyperkalaemia [Unknown]
  - Diabetic ketoacidosis [Fatal]
  - Cardiac arrest [Fatal]
  - Faeces discoloured [Unknown]
  - Vomiting [Unknown]

NARRATIVE: CASE EVENT DATE: 201809
